FAERS Safety Report 5155114-8 (Version None)
Quarter: 2006Q4

REPORT INFORMATION
  Report Type: 
  Country: None (occurrence: None)
  Receive Date: 20061120
  Receipt Date: 20061120
  Transmission Date: 20070319
  Serious: Yes (Disabling, Other)
  Sender: FDA-Public Use
  Company Number: None

PATIENT
  Age: 52 Year
  Sex: Male
  Weight: 78.0187 kg

DRUGS (2)
  1. OXYCODONE 30 MG [Suspect]
     Indication: ARTHRALGIA
     Dosage: 30MG   6 DAILY   PO
     Route: 048
     Dates: start: 20030601, end: 20060912
  2. KADIAN [Suspect]
     Dosage: 100MG    2 DAILY   PO
     Route: 048
     Dates: start: 20030601, end: 20060912

REACTIONS (2)
  - DRUG DEPENDENCE [None]
  - DRUG PRESCRIBING ERROR [None]
